FAERS Safety Report 4523728-1 (Version None)
Quarter: 2004Q4

REPORT INFORMATION
  Report Type: 
  Country: None (occurrence: None)
  Receive Date: 20041210
  Receipt Date: 20040730
  Transmission Date: 20050328
  Serious: Yes (Hospitalization, Other)
  Sender: FDA-Public Use
  Company Number: PHHO2004RU10770

PATIENT
  Age: 68 Year
  Sex: Female
  Weight: 66 kg

DRUGS (13)
  1. ZOLEDRONATE VS PLACEBO [Suspect]
     Indication: OSTEOPOROSIS POSTMENOPAUSAL
     Dosage: DOUBLE-BLIND
     Route: 042
     Dates: start: 20020620
  2. CALCIUM [Concomitant]
     Indication: OSTEOPOROSIS POSTMENOPAUSAL
     Dosage: 2 OT, QD
     Route: 048
     Dates: start: 20020620
  3. VITAMIN D3 [Concomitant]
     Indication: OSTEOPOROSIS POSTMENOPAUSAL
     Dosage: 2 OT, QD
     Route: 048
     Dates: start: 20020620
  4. L-THYROXIN [Concomitant]
     Dosage: 75 OT, Q12H
     Dates: start: 20000101
  5. PANZYNORM FORTE [Concomitant]
     Dosage: 3 OT, QD
     Route: 048
     Dates: start: 20020605, end: 20020609
  6. KREON [Concomitant]
     Dosage: 3 OT, QD
     Route: 048
     Dates: start: 20030609, end: 20030916
  7. FAMOTIDINE [Concomitant]
     Dosage: 20 UG, QD
     Dates: start: 20030609, end: 20030916
  8. MEZYM FORTE [Concomitant]
     Dosage: 3 OT, QD
     Dates: start: 20040127, end: 20040724
  9. NO-SPA [Concomitant]
     Dosage: 3 OT, QD
     Dates: start: 20040127, end: 20040205
  10. RANITIDINE [Concomitant]
     Dosage: 300 UG, QD
     Dates: start: 20040718
  11. LINEX [Concomitant]
     Dosage: 6 OT, QD
     Route: 048
     Dates: start: 20040713, end: 20040714
  12. PANCREATIN [Concomitant]
     Dosage: 3 OT, QD
     Route: 048
     Dates: start: 20040718
  13. EGLONYL [Concomitant]
     Dosage: 100 MG, QD
     Dates: start: 20040718

REACTIONS (9)
  - ASTHENIA [None]
  - BRADYCARDIA [None]
  - CARDIAC PACEMAKER INSERTION [None]
  - HYPOTHYROIDISM POSTOPERATIVE [None]
  - INSOMNIA [None]
  - LYMPHADENOPATHY [None]
  - MEDULLARY THYROID CANCER [None]
  - SICK SINUS SYNDROME [None]
  - THYROIDECTOMY [None]
